FAERS Safety Report 7282979-6 (Version None)
Quarter: 2011Q1

REPORT INFORMATION
  Report Type: 
  Country: None (occurrence: None)
  Receive Date: 20110209
  Receipt Date: 20110207
  Transmission Date: 20110831
  Serious: Yes (Hospitalization)
  Sender: FDA-Public Use
  Company Number: DE-ABBOTT-10P-062-0622540-00

PATIENT
  Age: 63 Year
  Sex: Female

DRUGS (3)
  1. HUMIRA [Suspect]
     Indication: RHEUMATOID ARTHRITIS
     Route: 058
     Dates: start: 20060601, end: 20090401
  2. METHOTREXAT [Concomitant]
     Indication: RHEUMATOID ARTHRITIS
     Dates: start: 20060101
  3. HUMIRA [Suspect]
     Route: 058
     Dates: start: 20090701

REACTIONS (2)
  - FOOT OPERATION [None]
  - CORONARY ARTERY DISEASE [None]
